FAERS Safety Report 6057018-5 (Version None)
Quarter: 2009Q1

REPORT INFORMATION
  Report Type: 
  Country: None (occurrence: None)
  Receive Date: 20090129
  Receipt Date: 20090126
  Transmission Date: 20090719
  Serious: Yes (Hospitalization)
  Sender: FDA-Public Use
  Company Number: JP-ASTRAZENECA-2008AP01717

PATIENT
  Age: 72 Year
  Sex: Female
  Weight: 42.3 kg

DRUGS (17)
  1. IRESSA [Suspect]
     Indication: NON-SMALL CELL LUNG CANCER
     Route: 048
     Dates: start: 20060705
  2. ENALAPRIL MALEATE [Concomitant]
     Indication: HYPERTENSION
     Route: 048
     Dates: start: 19930101
  3. ONEALFA [Concomitant]
     Indication: OSTEOPOROSIS
     Route: 048
     Dates: start: 19930101
  4. SIMVASTATIN [Concomitant]
     Indication: HYPERLIPIDAEMIA
     Dosage: DOSE UNKNOWN
     Route: 048
     Dates: start: 19930101
  5. MUCOSTA [Concomitant]
     Indication: GASTRITIS PROPHYLAXIS
     Dosage: DOSE UNKNOWN
     Route: 048
     Dates: start: 19930101
  6. DIDRONEL [Concomitant]
     Indication: OSTEOPOROSIS
     Route: 048
     Dates: start: 19930101
  7. WARFARIN [Concomitant]
     Indication: MITRAL VALVE DISEASE MIXED
     Route: 048
     Dates: start: 20060525
  8. ASPIRIN [Concomitant]
     Indication: MITRAL VALVE DISEASE MIXED
     Route: 048
     Dates: start: 20060731
  9. UNKNOWNDRUG [Concomitant]
     Indication: INFLUENZA IMMUNISATION
     Dosage: DOSE UNKNOWN
     Route: 058
     Dates: start: 20061023, end: 20061023
  10. XYLOCAINE [Concomitant]
     Indication: CARDIAC PACEMAKER REPLACEMENT
     Dosage: DOSE UNKNOWN
     Route: 058
     Dates: start: 20070328, end: 20070328
  11. SOLDEM 3A [Concomitant]
     Indication: CARDIAC PACEMAKER REPLACEMENT
     Dosage: DOSE UNKNOWN
     Route: 042
     Dates: start: 20070328, end: 20070328
  12. UNKNOWNDURG [Concomitant]
     Indication: CARDIAC PACEMAKER REPLACEMENT
     Dosage: DOSE UNKNOWN
     Route: 042
     Dates: start: 20070328, end: 20070328
  13. PENTAZOCINE LACTATE [Concomitant]
     Indication: CARDIAC PACEMAKER REPLACEMENT
     Dosage: DOSE UNKNOWN
     Route: 042
     Dates: start: 20070328, end: 20070328
  14. ATARAX [Concomitant]
     Indication: CARDIAC PACEMAKER REPLACEMENT
     Dosage: DOSE UNKNOWN
     Route: 042
     Dates: start: 20070328, end: 20070328
  15. PENTCILLIN [Concomitant]
     Indication: CARDIAC PACEMAKER REPLACEMENT
     Dosage: DOSE UNKNOWN
     Route: 042
     Dates: start: 20070328, end: 20070331
  16. TSUKUSHI AM?@POWDER [Concomitant]
     Indication: GASTRITIS PROPHYLAXIS
     Dosage: 1 PACK X 2/DAY
     Route: 048
  17. YODEL-S [Concomitant]
     Indication: CONSTIPATION
     Route: 048
     Dates: start: 20060731

REACTIONS (2)
  - ANAEMIA [None]
  - CARDIAC FAILURE [None]
